FAERS Safety Report 7415876-3 (Version None)
Quarter: 2011Q2

REPORT INFORMATION
  Report Type: 
  Country: None (occurrence: None)
  Receive Date: 20110414
  Receipt Date: 20110408
  Transmission Date: 20111010
  Serious: Yes (Other)
  Sender: FDA-Public Use
  Company Number: RU-GENZYME-CAMP-1001095

PATIENT
  Age: 61 Year

DRUGS (12)
  1. FLUDARA [Suspect]
     Dosage: UNK
     Route: 065
  2. FLUDARA [Suspect]
     Dosage: UNK
     Route: 065
  3. CAMPATH [Suspect]
     Indication: CHRONIC LYMPHOCYTIC LEUKAEMIA
     Dosage: UNK
     Route: 065
  4. CAMPATH [Suspect]
     Dosage: UNK
     Route: 065
  5. CAMPATH [Suspect]
     Dosage: UNK
     Route: 065
  6. CAMPATH [Suspect]
     Dosage: UNK
     Route: 065
  7. FLUDARA [Suspect]
     Indication: CHRONIC LYMPHOCYTIC LEUKAEMIA
     Dosage: UNK
     Route: 065
  8. CAMPATH [Suspect]
     Dosage: UNK
     Route: 065
  9. CAMPATH [Suspect]
     Dosage: UNK
     Route: 065
  10. FLUDARA [Suspect]
     Dosage: UNK
     Route: 065
  11. FLUDARA [Suspect]
     Dosage: UNK
     Route: 065
  12. FLUDARA [Suspect]
     Dosage: UNK
     Route: 065

REACTIONS (2)
  - FEBRILE NEUTROPENIA [None]
  - DEEP VEIN THROMBOSIS [None]
